FAERS Safety Report 16407408 (Version 3)
Quarter: 2019Q3

REPORT INFORMATION
  Report Type: Spontaneous
  Country: US (occurrence: US)
  Receive Date: 20190608
  Receipt Date: 20190816
  Transmission Date: 20191004
  Serious: No
  Sender: FDA-Public Use
  Company Number: US-JNJFOC-20190527599

PATIENT
  Sex: Male

DRUGS (1)
  1. TREMFYA [Suspect]
     Active Substance: GUSELKUMAB
     Indication: PRODUCT USED FOR UNKNOWN INDICATION
     Dosage: PRODUCT LOT NUMBER RX # 6977738
     Route: 065
     Dates: start: 20190422

REACTIONS (3)
  - Product availability issue [Unknown]
  - Psoriasis [Unknown]
  - Skin exfoliation [Unknown]
